FAERS Safety Report 10359195 (Version 3)
Quarter: 2014Q3

REPORT INFORMATION
  Report Type: Report from Study
  Country: AU (occurrence: AU)
  Receive Date: 20140804
  Receipt Date: 20140926
  Transmission Date: 20150326
  Serious: Yes (Death, Hospitalization)
  Sender: FDA-Public Use
  Company Number: PHHY2014AU094705

PATIENT
  Age: 90 Year
  Sex: Female
  Weight: 40 kg

DRUGS (1)
  1. ACLASTA [Suspect]
     Active Substance: ZOLEDRONIC ACID
     Indication: OSTEOPOROSIS
     Dosage: 5 MG, UNK
     Route: 042
     Dates: start: 20121108

REACTIONS (5)
  - Acute myocardial infarction [Fatal]
  - Chest pain [Fatal]
  - Cardiac arrest [Fatal]
  - Pulseless electrical activity [Fatal]
  - Ventricular fibrillation [Unknown]

NARRATIVE: CASE EVENT DATE: 201407
